FAERS Safety Report 14609745 (Version 1)
Quarter: 2018Q1

REPORT INFORMATION
  Report Type: Spontaneous
  Country: US (occurrence: US)
  Receive Date: 20180307
  Receipt Date: 20180307
  Transmission Date: 20180509
  Serious: No
  Sender: FDA-Public Use
  Company Number: US-GALDERMA-US17010007

PATIENT
  Age: 62 Year
  Sex: Female

DRUGS (4)
  1. TRI-LUMA [Suspect]
     Active Substance: FLUOCINOLONE ACETONIDE\HYDROQUINONE\TRETINOIN
     Indication: SCAR
     Route: 061
     Dates: start: 20170922, end: 20171023
  2. KLONOPIN [Concomitant]
     Active Substance: CLONAZEPAM
     Dates: start: 1997
  3. COGENTIN [Concomitant]
     Active Substance: BENZTROPINE MESYLATE
     Dates: start: 1997
  4. HALDOLPERINOL [Concomitant]
     Dates: start: 1997

REACTIONS (2)
  - Skin hypopigmentation [Not Recovered/Not Resolved]
  - Off label use [Not Recovered/Not Resolved]

NARRATIVE: CASE EVENT DATE: 20170922
